FAERS Safety Report 12601439 (Version 1)
Quarter: 2016Q3

REPORT INFORMATION
  Report Type: Spontaneous
  Country: US (occurrence: None)
  Receive Date: 20160727
  Receipt Date: 20160727
  Transmission Date: 20161109
  Serious: Yes (Other)
  Sender: FDA-Public Use
  Company Number: None

PATIENT
  Age: 72 Year
  Sex: Female
  Weight: 65.77 kg

DRUGS (14)
  1. AVELOX [Suspect]
     Active Substance: MOXIFLOXACIN HYDROCHLORIDE
     Indication: SINUSITIS
     Route: 048
     Dates: start: 20090511, end: 20090513
  2. ACIPHEX [Concomitant]
     Active Substance: RABEPRAZOLE SODIUM
  3. PRESSERVISION AREDS 2 [Concomitant]
  4. THYROXINE [Concomitant]
     Active Substance: LEVOTHYROXINE
  5. CALCIUM CITRATE/D [Concomitant]
  6. IRON SR [Concomitant]
  7. FISH OIL [Concomitant]
     Active Substance: FISH OIL
  8. RIGHT TOTAL KNEE [Concomitant]
  9. LEFT TOTAL KNEE [Concomitant]
  10. SENIOR MULTI [Concomitant]
  11. ASPIRIN 81 [Concomitant]
     Active Substance: ASPIRIN
  12. FIBER [Concomitant]
     Active Substance: PSYLLIUM HUSK
  13. CHLONAZAPAM [Concomitant]
  14. VENA CAVA FILTER [Concomitant]

REACTIONS (4)
  - Rash [None]
  - Swollen tongue [None]
  - Bronchospasm [None]
  - Transient ischaemic attack [None]

NARRATIVE: CASE EVENT DATE: 20090513
